FAERS Safety Report 6180298-2 (Version None)
Quarter: 2009Q2

REPORT INFORMATION
  Report Type: 
  Country: None (occurrence: None)
  Receive Date: 20090504
  Receipt Date: 20090504
  Transmission Date: 20091009
  Serious: Yes (Hospitalization)
  Sender: FDA-Public Use
  Company Number: None

PATIENT
  Sex: Male
  Weight: 127 kg

DRUGS (3)
  1. CYCLOPHOSPHAMIDE [Suspect]
     Dosage: 360 MG
     Dates: end: 20090408
  2. FLUDARABINE PHOSPHATE [Suspect]
     Dosage: 48 MG
     Dates: end: 20090408
  3. RITUXIMAB (MOAB C2B8 ANTI CD20, CHIMERIC) [Suspect]
     Dosage: 780 MG
     Dates: end: 20090408

REACTIONS (2)
  - ANAEMIA [None]
  - THROMBOCYTOPENIA [None]
